FAERS Safety Report 11327783 (Version 1)
Quarter: 2015Q3

REPORT INFORMATION
  Report Type: Spontaneous
  Country: IT (occurrence: IT)
  Receive Date: 20150731
  Receipt Date: 20150731
  Transmission Date: 20151125
  Serious: Yes (Other)
  Sender: FDA-Public Use
  Company Number: IT-FRESENIUS KABI-FK201503664

PATIENT
  Age: 57 Year
  Sex: Male

DRUGS (2)
  1. VINBLASTINE (MANUFACTURER UNKNOWN) [Suspect]
     Active Substance: VINBLASTINE
     Indication: KAPOSI^S SARCOMA
     Route: 042
  2. VINCRISTINE [Suspect]
     Active Substance: VINCRISTINE
     Indication: KAPOSI^S SARCOMA
     Route: 042

REACTIONS (1)
  - Epistaxis [Unknown]
